FAERS Safety Report 24216028 (Version 1)
Quarter: 2024Q3

REPORT INFORMATION
  Report Type: Spontaneous
  Country: GB (occurrence: GB)
  Receive Date: 20240816
  Receipt Date: 20240816
  Transmission Date: 20241017
  Serious: Yes (Disabling, Other)
  Sender: AMGEN
  Company Number: GB-AMGEN-GBRSP2024160695

PATIENT
  Sex: Female

DRUGS (8)
  1. ADALIMUMAB [Suspect]
     Active Substance: ADALIMUMAB
     Indication: Crohn^s disease
     Dosage: UNK
     Route: 065
     Dates: start: 2022, end: 20240602
  2. AMOXICILLIN\CLAVULANATE POTASSIUM [Concomitant]
     Active Substance: AMOXICILLIN\CLAVULANATE POTASSIUM
     Indication: Infection
     Dosage: UNK
     Dates: start: 202406, end: 202406
  3. ACYCLOVIR [Concomitant]
     Active Substance: ACYCLOVIR
     Indication: Herpes zoster
     Dosage: UNK
     Dates: start: 202403
  4. FLUCLOXACILLIN [Concomitant]
     Active Substance: FLUCLOXACILLIN
     Indication: Bacterial infection
     Dosage: UNK
  5. IVABRADINE [Concomitant]
     Active Substance: IVABRADINE
     Indication: Postural orthostatic tachycardia syndrome
     Dosage: UNK
     Dates: start: 2024
  6. FEXOFENADINE [Concomitant]
     Active Substance: FEXOFENADINE HYDROCHLORIDE
     Indication: Mast cell activation syndrome
     Dosage: UNK
     Dates: start: 2023
  7. FAMOTIDINE [Concomitant]
     Active Substance: FAMOTIDINE
     Indication: Mast cell activation syndrome
     Dosage: UNK
     Dates: start: 2023
  8. ETHINYL ESTRADIOL\LEVONORGESTREL [Concomitant]
     Active Substance: ETHINYL ESTRADIOL\LEVONORGESTREL
     Indication: Endometriosis
     Dosage: UNK
     Dates: start: 2015

REACTIONS (5)
  - Infection reactivation [Recovered/Resolved]
  - Infection [Recovered/Resolved]
  - Lupus-like syndrome [Recovering/Resolving]
  - Rash [Recovering/Resolving]
  - Herpes zoster [Recovered/Resolved]

NARRATIVE: CASE EVENT DATE: 20220101
